FAERS Safety Report 4932455-8 (Version None)
Quarter: 2006Q1

REPORT INFORMATION
  Report Type: 
  Country: None (occurrence: None)
  Receive Date: 20060303
  Receipt Date: 20050302
  Transmission Date: 20060701
  Serious: Yes (Hospitalization, Disabling)
  Sender: FDA-Public Use
  Company Number: US-MERCK-0503USA00379

PATIENT
  Age: 59 Year
  Sex: Female
  Weight: 107 kg

DRUGS (4)
  1. VIOXX [Suspect]
     Route: 048
  2. ZANTAC [Concomitant]
     Route: 065
  3. ZOLOFT [Concomitant]
     Route: 065
  4. ASPIRIN [Concomitant]
     Route: 065

REACTIONS (32)
  - ANGINA UNSTABLE [None]
  - AORTIC ARTERIOSCLEROSIS [None]
  - ARTERIOSCLEROSIS CORONARY ARTERY [None]
  - ARTHRALGIA [None]
  - CARDIAC DISORDER [None]
  - CARDIOMEGALY [None]
  - CHEST PAIN [None]
  - CORONARY ARTERY DISEASE [None]
  - DEPRESSION [None]
  - DIARRHOEA [None]
  - DYSPNOEA [None]
  - EMPHYSEMA [None]
  - FIBROMYALGIA [None]
  - GASTROOESOPHAGEAL REFLUX DISEASE [None]
  - HAEMORRHOIDS [None]
  - HYPERLIPIDAEMIA [None]
  - HYPERTENSION [None]
  - INTERVERTEBRAL DISC DEGENERATION [None]
  - LUMBAR SPINAL STENOSIS [None]
  - MALAISE [None]
  - MYOCARDIAL INFARCTION [None]
  - OCCULT BLOOD [None]
  - OSTEOARTHRITIS [None]
  - PAIN IN EXTREMITY [None]
  - PLANTAR FASCIITIS [None]
  - PLEURAL EFFUSION [None]
  - POLYP [None]
  - SINUS BRADYCARDIA [None]
  - STENT OCCLUSION [None]
  - THROMBOCYTOPENIA [None]
  - UPPER RESPIRATORY TRACT CONGESTION [None]
  - WEIGHT DECREASED [None]
